FAERS Safety Report 9934535 (Version 2)
Quarter: 2014Q1

REPORT INFORMATION
  Report Type: Spontaneous
  Country: US (occurrence: US)
  Receive Date: 20140228
  Receipt Date: 20140228
  Transmission Date: 20141002
  Serious: No
  Sender: FDA-Public Use
  Company Number: US-ASTRAZENECA-2003UW05692

PATIENT
  Sex: Female

DRUGS (7)
  1. TOPROL XL [Suspect]
     Indication: HEART RATE IRREGULAR
     Route: 048
     Dates: start: 200209
  2. CRESTOR [Suspect]
     Indication: BLOOD CHOLESTEROL ABNORMAL
     Route: 048
  3. CRESTOR [Suspect]
     Indication: BLOOD CHOLESTEROL ABNORMAL
     Route: 048
  4. LIPITOR [Concomitant]
  5. PREMARIN [Concomitant]
  6. PROVERA [Concomitant]
  7. INDERAL [Concomitant]

REACTIONS (5)
  - Tremor [Unknown]
  - Asthenia [Unknown]
  - Fatigue [Unknown]
  - Memory impairment [Not Recovered/Not Resolved]
  - Off label use [Not Recovered/Not Resolved]
